FAERS Safety Report 5000787-3 (Version None)
Quarter: 2006Q2

REPORT INFORMATION
  Report Type: 
  Country: None (occurrence: None)
  Receive Date: 20060512
  Receipt Date: 20060126
  Transmission Date: 20061013
  Serious: Yes (Hospitalization, Other)
  Sender: FDA-Public Use
  Company Number: US-MERCK-0601USA03286

PATIENT
  Age: 59 Year
  Sex: Male
  Weight: 100 kg

DRUGS (2)
  1. VIOXX [Suspect]
     Route: 048
     Dates: start: 20010701, end: 20041013
  2. PROTONIX [Concomitant]
     Route: 065

REACTIONS (11)
  - CEREBROVASCULAR ACCIDENT [None]
  - CERUMEN IMPACTION [None]
  - DEPRESSION [None]
  - GASTRITIS [None]
  - HAEMORRHOIDS [None]
  - HEADACHE [None]
  - LIBIDO DECREASED [None]
  - MEMORY IMPAIRMENT [None]
  - MOOD ALTERED [None]
  - PNEUMONIA [None]
  - TRANSIENT ISCHAEMIC ATTACK [None]
